FAERS Safety Report 7556336-9 (Version None)
Quarter: 2011Q2

REPORT INFORMATION
  Report Type: 
  Country: None (occurrence: None)
  Receive Date: 20110620
  Receipt Date: 20110614
  Transmission Date: 20111010
  Serious: Yes (Death, Hospitalization)
  Sender: FDA-Public Use
  Company Number: IT-JNJFOC-20101004671

PATIENT
  Sex: Female

DRUGS (5)
  1. ZOFRAN [Concomitant]
     Indication: PRODUCT USED FOR UNKNOWN INDICATION
     Route: 042
  2. EPREX [Suspect]
     Indication: ANAEMIA
     Route: 058
     Dates: start: 20100901, end: 20100901
  3. DEXAMETHASONE [Concomitant]
     Indication: PRODUCT USED FOR UNKNOWN INDICATION
     Route: 042
  4. DOXORUBICIN HYDROCHLORIDE [Suspect]
     Indication: METASTATIC NEOPLASM
     Route: 042
     Dates: start: 20100901, end: 20100901
  5. GEMZAR [Suspect]
     Indication: METASTATIC NEOPLASM
     Route: 042
     Dates: start: 20100901, end: 20100901

REACTIONS (4)
  - CONFUSIONAL STATE [None]
  - DECREASED APPETITE [None]
  - POSTERIOR REVERSIBLE ENCEPHALOPATHY SYNDROME [None]
  - VOMITING [None]
